FAERS Safety Report 6199941-7 (Version None)
Quarter: 2009Q2

REPORT INFORMATION
  Report Type: 
  Country: None (occurrence: None)
  Receive Date: 20090520
  Receipt Date: 20090520
  Transmission Date: 20091009
  Serious: Yes (Other)
  Sender: FDA-Public Use
  Company Number: None

PATIENT
  Age: 50 Year
  Sex: Female
  Weight: 58.0604 kg

DRUGS (2)
  1. HALFLYTELY [Suspect]
     Indication: BOWEL PREPARATION
     Dosage: HALF GALLON SEVERAL HOURS PO
     Route: 048
     Dates: start: 20090330, end: 20090330
  2. BISACODYL [Suspect]
     Indication: BOWEL PREPARATION
     Dosage: TABLET ONCE PO
     Route: 048

REACTIONS (1)
  - NEPHROLITHIASIS [None]
